FAERS Safety Report 17225980 (Version 1)
Quarter: 2020Q1

REPORT INFORMATION
  Report Type: Spontaneous
  Country: US (occurrence: US)
  Receive Date: 20200102
  Receipt Date: 20200102
  Transmission Date: 20200409
  Serious: No
  Sender: FDA-Public Use
  Company Number: US-BAYER-2019-235302

PATIENT
  Sex: Female

DRUGS (2)
  1. MIRENA [Suspect]
     Active Substance: LEVONORGESTREL
     Indication: UTERINE ENLARGEMENT
  2. MIRENA [Suspect]
     Active Substance: LEVONORGESTREL
     Indication: UTERINE ENLARGEMENT
     Dosage: 20 MCG/24HR, CONT
     Route: 015

REACTIONS (6)
  - Nausea [None]
  - Gastric disorder [None]
  - Weight decreased [None]
  - Off label use of device [None]
  - Device use issue [None]
  - Malaise [None]
